FAERS Safety Report 16001898 (Version 3)
Quarter: 2019Q4

REPORT INFORMATION
  Report Type: Report from Study
  Country: IT (occurrence: IT)
  Receive Date: 20190225
  Receipt Date: 20191212
  Transmission Date: 20200122
  Serious: Yes (Other)
  Sender: FDA-Public Use
  Company Number: PHHY2019IT034544

PATIENT
  Age: 41 Year
  Sex: Female

DRUGS (2)
  1. CORTONE ACETATO [Concomitant]
     Active Substance: CORTISONE ACETATE
     Indication: HYPOTHALAMO-PITUITARY DISORDER
     Dosage: 25 MG, UNK
     Route: 048
     Dates: start: 20170516
  2. SIGNIFOR LAR [Suspect]
     Active Substance: PASIREOTIDE
     Indication: ACROMEGALY
     Dosage: 40 MG, QMO
     Route: 030
     Dates: start: 20180424

REACTIONS (2)
  - Diabetes mellitus [Not Recovered/Not Resolved]
  - Hypercholesterolaemia [Recovered/Resolved with Sequelae]

NARRATIVE: CASE EVENT DATE: 20181205
